FAERS Safety Report 6569194-6 (Version None)
Quarter: 2010Q1

REPORT INFORMATION
  Report Type: 
  Country: None (occurrence: None)
  Receive Date: 20100201
  Receipt Date: 20100201
  Transmission Date: 20100710
  Serious: Yes (Other)
  Sender: FDA-Public Use
  Company Number: None

PATIENT
  Age: 44 Year
  Sex: Female
  Weight: 68.9467 kg

DRUGS (1)
  1. TRIAMCINOLONE [Suspect]
     Indication: NASOPHARYNGITIS
     Dates: start: 20090425, end: 20090925

REACTIONS (10)
  - AFFECTIVE DISORDER [None]
  - ANGER [None]
  - FATIGUE [None]
  - HAIR GROWTH ABNORMAL [None]
  - HORMONE LEVEL ABNORMAL [None]
  - IMMUNE SYSTEM DISORDER [None]
  - INCORRECT ROUTE OF DRUG ADMINISTRATION [None]
  - INFLAMMATION [None]
  - INJECTION SITE ATROPHY [None]
  - MENSTRUATION IRREGULAR [None]
